FAERS Safety Report 5012011-6 (Version None)
Quarter: 2006Q2

REPORT INFORMATION
  Report Type: 
  Country: None (occurrence: None)
  Receive Date: 20060524
  Receipt Date: 20060511
  Transmission Date: 20061013
  Serious: Yes (Death, Life-Threatening, Hospitalization)
  Sender: FDA-Public Use
  Company Number: 163-C5013-06050381

PATIENT
  Age: 71 Year
  Sex: Female
  Weight: 82.3 kg

DRUGS (13)
  1. REVLIMID [Suspect]
     Indication: MULTIPLE MYELOMA
     Dosage: 25 MG, QD, ON DAYS 1-21, ORAL
     Route: 048
     Dates: start: 20060222, end: 20060412
  2. DEXAMETHASONE [Suspect]
     Indication: MULTIPLE MYELOMA
     Dosage: 40 MG, QD, O DAYS 1-4, 9-12, 17-20, ORAL
     Route: 048
     Dates: start: 20060222, end: 20060412
  3. ADVAIR DISKUS 100/50 [Concomitant]
  4. ALBUTEROL [Concomitant]
  5. SINGULAIR [Concomitant]
  6. PROZAC [Concomitant]
  7. PRILOSEC [Concomitant]
  8. MS CONTIN [Concomitant]
  9. COLACE (DOCUSATE SODIUM) [Concomitant]
  10. LACTULOSE [Concomitant]
  11. SENOKOT [Concomitant]
  12. ALLEGRA [Concomitant]
  13. FLONASE [Concomitant]

REACTIONS (15)
  - ASTHMA [None]
  - BRONCHIECTASIS [None]
  - CYST [None]
  - FATIGUE [None]
  - HAEMOGLOBIN DECREASED [None]
  - LUNG CONSOLIDATION [None]
  - LUNG DISORDER [None]
  - LUNG INFILTRATION [None]
  - MALAISE [None]
  - NEUROPATHY [None]
  - OXYGEN SATURATION DECREASED [None]
  - PNEUMONIA [None]
  - PRODUCTIVE COUGH [None]
  - RADIATION FIBROSIS - LUNG [None]
  - RESPIRATORY FAILURE [None]
